FAERS Safety Report 5207224-4 (Version None)
Quarter: 2007Q1

REPORT INFORMATION
  Report Type: 
  Country: None (occurrence: None)
  Receive Date: 20070110
  Receipt Date: 20070103
  Transmission Date: 20070707
  Serious: Yes (Other)
  Sender: FDA-Public Use
  Company Number: 07011968

PATIENT
  Age: 49 Year
  Sex: Female

DRUGS (1)
  1. CARBAMAZEPINE [Suspect]
     Indication: EPILEPSY
     Dosage: QD, ORAL
     Route: 048

REACTIONS (2)
  - CRYPTOGENIC ORGANISING PNEUMONIA [None]
  - HYPOGAMMAGLOBULINAEMIA [None]
